FAERS Safety Report 15021260 (Version 1)
Quarter: 2018Q2

REPORT INFORMATION
  Report Type: Spontaneous
  Country: CA (occurrence: CA)
  Receive Date: 20180618
  Receipt Date: 20180618
  Transmission Date: 20180711
  Serious: Yes (Other)
  Sender: FDA-Public Use
  Company Number: CA-ROCHE-2139106

PATIENT
  Age: 57 Year
  Sex: Male

DRUGS (2)
  1. XOLAIR [Suspect]
     Active Substance: OMALIZUMAB
     Route: 058
     Dates: start: 20130614
  2. XOLAIR [Suspect]
     Active Substance: OMALIZUMAB
     Indication: ASTHMA
     Route: 058
     Dates: start: 20130321

REACTIONS (18)
  - Headache [Unknown]
  - Urticaria [Unknown]
  - Asthenia [Unknown]
  - Hyperhidrosis [Unknown]
  - Dehydration [Unknown]
  - Chest pain [Unknown]
  - Blood pressure systolic decreased [Unknown]
  - Mobility decreased [Unknown]
  - Fatigue [Unknown]
  - Depressed mood [Unknown]
  - Pain [Unknown]
  - Obstructive airways disorder [Unknown]
  - Nasopharyngitis [Unknown]
  - Blood pressure increased [Unknown]
  - Lung hyperinflation [Unknown]
  - Asthma [Unknown]
  - Dermatitis [Unknown]
  - Dyspnoea [Unknown]

NARRATIVE: CASE EVENT DATE: 20130614
